FAERS Safety Report 6374425-1 (Version None)
Quarter: 2009Q3

REPORT INFORMATION
  Report Type: 
  Country: None (occurrence: None)
  Receive Date: 20090915
  Receipt Date: 20090915
  Transmission Date: 20100115
  Serious: Yes (Hospitalization)
  Sender: FDA-Public Use
  Company Number: None

PATIENT
  Age: 77 Year
  Sex: Male
  Weight: 83.7 kg

DRUGS (2)
  1. BEXXAR [Suspect]
     Indication: NON-HODGKIN'S LYMPHOMA
     Dosage: 75CGY X 1 IV
     Route: 042
     Dates: start: 20090722, end: 20090729
  2. VELCADE [Suspect]
     Indication: NON-HODGKIN'S LYMPHOMA
     Dosage: 1.8 MG X 5 IV
     Route: 042
     Dates: start: 20090727, end: 20090810

REACTIONS (3)
  - CHEST PAIN [None]
  - HERPES ZOSTER [None]
  - PYREXIA [None]
